FAERS Safety Report 20845382 (Version 1)
Quarter: 2022Q2

REPORT INFORMATION
  Report Type: Spontaneous
  Country: US (occurrence: None)
  Receive Date: 20220518
  Receipt Date: 20220518
  Transmission Date: 20220721
  Serious: Yes (Hospitalization)
  Sender: FDA-Public Use
  Company Number: None

PATIENT
  Age: 32 Year
  Sex: Male

DRUGS (3)
  1. RISPERIDONE [Suspect]
     Active Substance: RISPERIDONE
  2. RISPERIDONE [Suspect]
     Active Substance: RISPERIDONE
  3. TRAZODONE HYDROCHLORIDE [Suspect]
     Active Substance: TRAZODONE HYDROCHLORIDE

REACTIONS (3)
  - Overdose [None]
  - Blood alcohol increased [None]
  - Alcohol abuse [None]

NARRATIVE: CASE EVENT DATE: 20220420
